FAERS Safety Report 7456194-7 (Version None)
Quarter: 2011Q2

REPORT INFORMATION
  Report Type: 
  Country: None (occurrence: None)
  Receive Date: 20110426
  Receipt Date: 20110408
  Transmission Date: 20111010
  Serious: Yes (Other)
  Sender: FDA-Public Use
  Company Number: 2011SP013279

PATIENT
  Age: 31 Year
  Sex: Female

DRUGS (6)
  1. PRILOSEC [Concomitant]
  2. RANIDINE [Concomitant]
  3. VENTAL [Concomitant]
  4. FERROUS SULFATE TAB [Concomitant]
  5. ZEGERID OTC [Suspect]
     Indication: GASTROINTESTINAL DISORDER
     Dosage: ONCE;PO
     Route: 048
     Dates: start: 20110303
  6. LEVOXYL [Concomitant]

REACTIONS (2)
  - HYPERSENSITIVITY [None]
  - DIARRHOEA [None]
